FAERS Safety Report 6265700-X (Version None)
Quarter: 2009Q3

REPORT INFORMATION
  Report Type: 
  Country: None (occurrence: None)
  Receive Date: 20090713
  Receipt Date: 20090611
  Transmission Date: 20100115
  Serious: No
  Sender: FDA-Public Use
  Company Number: US-BAYER-200839769NA

PATIENT
  Age: 48 Year
  Sex: Female
  Weight: 77 kg

DRUGS (15)
  1. CAMPATH [Suspect]
     Indication: MULTIPLE SCLEROSIS
     Route: 042
     Dates: start: 20080801, end: 20080801
  2. BACTRIM DS [Concomitant]
     Indication: INFECTION PROPHYLAXIS
     Dosage: BID X 3 DAY/WK
  3. ACYCLOVIR [Concomitant]
     Indication: INFECTION PROPHYLAXIS
  4. PROVIGIL [Concomitant]
     Dosage: TOTAL DAILY DOSE: 200 MG
  5. NAMENDA [Concomitant]
     Dosage: TOTAL DAILY DOSE: 20 MG
  6. CALCIUM + D [Concomitant]
     Dosage: TOTAL DAILY DOSE: 1200 MG
  7. MULTI-VITAMIN [Concomitant]
  8. CARBATROL [Concomitant]
     Dosage: TOTAL DAILY DOSE: 200 MG
  9. PREDNISONE [Concomitant]
     Dosage: 10 MG ALTERNATING WITH 5 MG
  10. ZOLOFT [Concomitant]
     Dosage: TOTAL DAILY DOSE: 100 MG
  11. VALIUM [Concomitant]
     Dosage: TOTAL DAILY DOSE: 2 MG
  12. AMITRIPTYLINE [Concomitant]
     Dosage: TOTAL DAILY DOSE: 10 MG
  13. AMBIEN [Concomitant]
     Dosage: TOTAL DAILY DOSE: 5 MG
  14. DITROPAN [Concomitant]
     Dosage: TOTAL DAILY DOSE: 10 MG
  15. BACLOFEN [Concomitant]
     Dosage: PUMP

REACTIONS (1)
  - FATIGUE [None]
